FAERS Safety Report 21944304 (Version 1)
Quarter: 2023Q1

REPORT INFORMATION
  Report Type: Other
  Country: None (occurrence: US)
  Receive Date: 20230202
  Receipt Date: 20230202
  Transmission Date: 20230417
  Serious: Yes (Life-Threatening, Hospitalization, Other)
  Sender: FDA-Public Use
  Company Number: US-Spectra Medical Devices, LLC-2137394

PATIENT
  Age: 37 Year
  Sex: Female

DRUGS (3)
  1. LIDOCAINE HYDROCHLORIDE ANHYDROUS [Suspect]
     Active Substance: LIDOCAINE HYDROCHLORIDE ANHYDROUS
     Indication: Anaesthesia
     Route: 065
  2. SODIUM BICARBONATE [Concomitant]
     Active Substance: SODIUM BICARBONATE
     Route: 065
  3. EPINEPHRINE [Concomitant]
     Active Substance: EPINEPHRINE
     Route: 065

REACTIONS (4)
  - Status epilepticus [Recovered/Resolved]
  - Local anaesthetic systemic toxicity [Recovered/Resolved]
  - Heart rate increased [Unknown]
  - Blood pressure increased [Unknown]
